FAERS Safety Report 7156142-3 (Version None)
Quarter: 2010Q4

REPORT INFORMATION
  Report Type: 
  Country: None (occurrence: None)
  Receive Date: 20101123
  Receipt Date: 20100910
  Transmission Date: 20110411
  Serious: No
  Sender: FDA-Public Use
  Company Number: 018520

PATIENT
  Sex: Female
  Weight: 53.5 kg

DRUGS (5)
  1. CIMZIA [Suspect]
     Indication: RHEUMATOID ARTHRITIS
     Dosage: 20 MG 1X/2 WEEKS SUBCUTANEOUS
     Route: 058
     Dates: start: 20090901
  2. METHOTREXATE [Concomitant]
  3. FOLIC ACID [Concomitant]
  4. DICLOFENAC [Concomitant]
  5. AMBIEN [Concomitant]

REACTIONS (1)
  - INJECTION SITE REACTION [None]
